FAERS Safety Report 19297805 (Version 1)
Quarter: 2021Q2

REPORT INFORMATION
  Report Type: Spontaneous
  Country: US (occurrence: US)
  Receive Date: 20210524
  Receipt Date: 20210524
  Transmission Date: 20210717
  Serious: No
  Sender: FDA-Public Use
  Company Number: US-PERRIGO-20US005475

PATIENT
  Age: 64 Year
  Sex: Female
  Weight: 90.7 kg

DRUGS (5)
  1. MOMETASONE FUROATE. [Suspect]
     Active Substance: MOMETASONE FUROATE
     Indication: PRURITUS
     Dosage: SMALL AMOUNT, , QD, PRN
     Route: 061
     Dates: start: 2019
  2. MOMETASONE FUROATE. [Suspect]
     Active Substance: MOMETASONE FUROATE
     Indication: ECZEMA
     Dosage: 2 DROPS, SINGLE
     Route: 047
     Dates: start: 20200412, end: 20200412
  3. OTHER OPHTHALMOLOGICALS [Concomitant]
     Active Substance: UNSPECIFIED INGREDIENT
     Indication: HYPERSENSITIVITY
     Dosage: UNK
     Route: 047
     Dates: start: 201908
  4. VISINE                             /00256502/ [Concomitant]
     Indication: DRY EYE
  5. VISINE                             /00256502/ [Concomitant]
     Indication: OCULAR HYPERAEMIA
     Dosage: UNKNOWN, PRN
     Route: 047

REACTIONS (2)
  - Accidental exposure to product [Recovered/Resolved]
  - Eye irritation [Recovered/Resolved]

NARRATIVE: CASE EVENT DATE: 20200412
